FAERS Safety Report 17408460 (Version 6)
Quarter: 2021Q2

REPORT INFORMATION
  Report Type: Spontaneous
  Country: FR (occurrence: FR)
  Receive Date: 20200212
  Receipt Date: 20210615
  Transmission Date: 20210716
  Serious: Yes (Other)
  Sender: FDA-Public Use
  Company Number: FR-MYLANLABS-2020M1015198

PATIENT
  Age: 20 Year
  Sex: Male
  Weight: 75 kg

DRUGS (11)
  1. ACITRETIN. [Suspect]
     Active Substance: ACITRETIN
     Indication: PUSTULAR PSORIASIS
     Dosage: 25 MILLIGRAM, QD (25 MG, QD (FOR SEVEN MONTHS))
     Route: 065
  2. COSENTYX [Suspect]
     Active Substance: SECUKINUMAB
     Indication: PSORIATIC ARTHROPATHY
     Dosage: 2 DOSAGE FORM, QD (2 DF, QD (150 MG))
     Route: 058
     Dates: start: 20170214, end: 20170214
  3. COSENTYX [Suspect]
     Active Substance: SECUKINUMAB
     Indication: PUSTULAR PSORIASIS
     Dosage: 2 DOSAGE FORM, QD (2 DF, QD (150 MG))
     Route: 058
     Dates: start: 20170117, end: 20170117
  4. COSENTYX [Suspect]
     Active Substance: SECUKINUMAB
     Dosage: 2 DOSAGE FORM, QD (2 DF, QD (150 MG))
     Route: 058
     Dates: start: 20170124
  5. COSENTYX [Suspect]
     Active Substance: SECUKINUMAB
     Dosage: 2 DOSAGE FORM, QD (2 DF, QD (150 MG))
     Route: 058
     Dates: start: 20170131, end: 20170131
  6. METHOTREXATE. [Suspect]
     Active Substance: METHOTREXATE
     Dosage: 15 MILLIGRAM, QW (15 MG, QW (FOR ONE MONTH))
     Route: 065
  7. DESLORATADINE. [Concomitant]
     Active Substance: DESLORATADINE
     Indication: PUSTULAR PSORIASIS
     Dosage: 20 MILLIGRAM, QD
     Route: 065
  8. METHOTREXATE. [Suspect]
     Active Substance: METHOTREXATE
     Indication: PUSTULAR PSORIASIS
     Dosage: 20 MILLIGRAM, QW (20 MG, QW (FOR 3 MONTHS))
     Route: 065
  9. DERMOVAL                           /00337102/ [Concomitant]
     Active Substance: CLOBETASOL PROPIONATE
     Indication: PSORIASIS
     Dosage: UNK
     Route: 065
  10. SECUKINUMAB. [Suspect]
     Active Substance: SECUKINUMAB
     Indication: PUSTULAR PSORIASIS
     Dosage: 300 MILLIGRAM, QW (300 MG, QW (IN THE 12 HOURS THAT FOLLOWED THIRD INJECTION))
     Route: 058
  11. COSENTYX [Suspect]
     Active Substance: SECUKINUMAB
     Dosage: 300 MILLIGRAM, QW (300 MG, QW (IN THE 12 HOURS THAT FOLLOWED THIRD INHECTION))
     Route: 058

REACTIONS (14)
  - Skin oedema [Unknown]
  - Lip oedema [Unknown]
  - Product use in unapproved indication [Unknown]
  - Angioedema [Recovered/Resolved]
  - Anaphylactoid reaction [Unknown]
  - Urticaria [Recovered/Resolved]
  - Pruritus [Unknown]
  - Eyelid oedema [Unknown]
  - Type I hypersensitivity [Unknown]
  - Inappropriate schedule of product administration [Unknown]
  - Rash erythematous [Unknown]
  - Dysphagia [Unknown]
  - Anaphylactic reaction [Unknown]
  - Muscle spasms [Unknown]

NARRATIVE: CASE EVENT DATE: 20170117
